FAERS Safety Report 5192385-6 (Version None)
Quarter: 2006Q4

REPORT INFORMATION
  Report Type: 
  Country: None (occurrence: None)
  Receive Date: 20061227
  Receipt Date: 20061218
  Transmission Date: 20070319
  Serious: Yes (Life-Threatening)
  Sender: FDA-Public Use
  Company Number: FR-PFIZER INC-2006154637

PATIENT
  Age: 83 Year
  Sex: Male
  Weight: 56 kg

DRUGS (6)
  1. ZOLOFT [Suspect]
     Route: 048
     Dates: start: 20060923, end: 20060923
  2. ASPEGIC 1000 [Suspect]
     Route: 048
     Dates: start: 20060923, end: 20060923
  3. EQUANIL [Suspect]
     Route: 048
     Dates: start: 20060923, end: 20060923
  4. JOSIR [Suspect]
     Route: 048
     Dates: start: 20060923, end: 20060923
  5. TERCIAN [Suspect]
     Dosage: DAILY DOSE:10MG-TEXT:40 MG/ML
     Route: 048
     Dates: start: 20060923, end: 20060923
  6. DEPAKENE [Concomitant]

REACTIONS (3)
  - MEDICATION ERROR [None]
  - SHOCK [None]
  - WRONG DRUG ADMINISTERED [None]
